FAERS Safety Report 12928378 (Version 3)
Quarter: 2017Q1

REPORT INFORMATION
  Report Type: Spontaneous
  Country: US (occurrence: US)
  Receive Date: 20161110
  Receipt Date: 20170321
  Transmission Date: 20170428
  Serious: Yes (Hospitalization, Other)
  Sender: FDA-Public Use
  Company Number: US-SUN PHARMACEUTICAL INDUSTRIES LTD-2016US-127428

PATIENT
  Age: 37 Year
  Sex: Male

DRUGS (3)
  1. MORPHINE [Suspect]
     Active Substance: MORPHINE
     Indication: BACK PAIN
     Dosage: SUSTAINED-RELEASE TABS
     Route: 042
  2. MORPHINE [Suspect]
     Active Substance: MORPHINE
     Indication: BACK PAIN
     Dosage: IMMEDIATE RELEASE TABS, DISSOLVED IN TAP WATER + INJECTED INTRAVENOUSLY ON 3 OCCASIONS OVER 5-7 DAYS
     Route: 042
  3. HEROIN [Concomitant]
     Active Substance: DIACETYLMORPHINE
     Indication: PRODUCT USED FOR UNKNOWN INDICATION
     Route: 065

REACTIONS (4)
  - Myocarditis [Unknown]
  - Pericarditis [Recovered/Resolved]
  - Wrong technique in product usage process [Unknown]
  - Pulmonary granuloma [Unknown]
